FAERS Safety Report 4772840-0 (Version None)
Quarter: 2005Q3

REPORT INFORMATION
  Report Type: 
  Country: None (occurrence: None)
  Receive Date: 20050919
  Receipt Date: 20050805
  Transmission Date: 20060218
  Serious: Yes (Hospitalization)
  Sender: FDA-Public Use
  Company Number: PHBS2005JP11520

PATIENT
  Age: 55 Year
  Sex: Female

DRUGS (20)
  1. LOCHOL [Suspect]
     Indication: HYPERLIPIDAEMIA
     Dosage: 20 MG/DAY
     Route: 048
     Dates: start: 20030801, end: 20050801
  2. TETRAMIDE [Suspect]
     Route: 048
  3. GOODMIN [Concomitant]
     Route: 048
  4. EURODIN [Concomitant]
     Dosage: 1 MG/DAY
     Route: 048
  5. BROVARIN [Concomitant]
     Route: 048
  6. MYSLEE [Concomitant]
     Route: 048
  7. DEPAS [Suspect]
     Route: 048
  8. DORAL [Concomitant]
     Route: 048
  9. PURSENNID [Concomitant]
     Route: 048
  10. RHYTHMY [Concomitant]
     Route: 048
  11. DESYREL [Suspect]
     Route: 048
  12. TOFRANIL [Suspect]
     Route: 048
  13. AKINETON [Suspect]
     Route: 048
  14. ACECOL [Suspect]
     Route: 048
  15. OMEPRAZOLE [Suspect]
     Route: 048
  16. CONTOMIN [Concomitant]
     Route: 048
  17. RHUBARB DRY EXTRACT [Concomitant]
     Dosage: 3 G/DAY
     Route: 048
  18. KAMAG G [Concomitant]
     Dosage: 1 G/DAY
     Route: 048
  19. PL GRAN. [Concomitant]
     Route: 048
  20. THIATON [Concomitant]
     Route: 048

REACTIONS (12)
  - ALANINE AMINOTRANSFERASE INCREASED [None]
  - ASPARTATE AMINOTRANSFERASE INCREASED [None]
  - BLOOD ALKALINE PHOSPHATASE INCREASED [None]
  - BLOOD CREATINE PHOSPHOKINASE INCREASED [None]
  - BLOOD CREATININE INCREASED [None]
  - BLOOD GLUCOSE INCREASED [None]
  - BLOOD LACTATE DEHYDROGENASE INCREASED [None]
  - BLOOD UREA INCREASED [None]
  - GLUCOSE URINE PRESENT [None]
  - HYPOAESTHESIA [None]
  - PROTEIN URINE PRESENT [None]
  - RHABDOMYOLYSIS [None]
